FAERS Safety Report 20087298 (Version 1)
Quarter: 2021Q4

REPORT INFORMATION
  Report Type: Spontaneous
  Country: US (occurrence: US)
  Receive Date: 20211118
  Receipt Date: 20211118
  Transmission Date: 20220303
  Serious: Yes (Other)
  Sender: FDA-Public Use
  Company Number: US-GLAXOSMITHKLINE-US2021GSK238035

PATIENT
  Sex: Female

DRUGS (25)
  1. RANITIDINE [Suspect]
     Active Substance: RANITIDINE
     Indication: Dyspepsia
     Dosage: 75 MG BOTH
     Route: 065
     Dates: start: 198501, end: 201601
  2. RANITIDINE [Suspect]
     Active Substance: RANITIDINE
     Indication: Abdominal discomfort
     Dosage: 150 MG BOTH
     Route: 065
     Dates: start: 198501, end: 201601
  3. RANITIDINE [Suspect]
     Active Substance: RANITIDINE
     Indication: Gastrooesophageal reflux disease
     Dosage: 75 MG BOTH
     Route: 065
     Dates: start: 199701, end: 201601
  4. RANITIDINE [Suspect]
     Active Substance: RANITIDINE
     Dosage: 150 MG BOTH
     Route: 065
     Dates: start: 199701, end: 201601
  5. RANITIDINE [Suspect]
     Active Substance: RANITIDINE
     Dosage: 300 MG, QD
     Route: 065
     Dates: start: 199701, end: 201601
  6. ZANTAC [Suspect]
     Active Substance: RANITIDINE HYDROCHLORIDE
     Indication: Dyspepsia
     Dosage: 75 MG BOTH
     Route: 065
     Dates: start: 198501, end: 201601
  7. ZANTAC [Suspect]
     Active Substance: RANITIDINE HYDROCHLORIDE
     Indication: Abdominal discomfort
     Dosage: 150 MG BOTH
     Route: 065
     Dates: start: 198501, end: 201601
  8. ZANTAC [Suspect]
     Active Substance: RANITIDINE HYDROCHLORIDE
     Indication: Gastrooesophageal reflux disease
     Dosage: 300 MG, QD
     Route: 065
     Dates: start: 198501, end: 201601
  9. ZANTAC [Suspect]
     Active Substance: RANITIDINE HYDROCHLORIDE
     Dosage: UNK
  10. ZANTAC [Suspect]
     Active Substance: RANITIDINE HYDROCHLORIDE
     Dosage: UNK
  11. ZANTAC [Suspect]
     Active Substance: RANITIDINE HYDROCHLORIDE
     Indication: Dyspepsia
     Dosage: 75 MG BOTH
     Route: 065
     Dates: start: 198501, end: 201601
  12. ZANTAC [Suspect]
     Active Substance: RANITIDINE HYDROCHLORIDE
     Indication: Abdominal discomfort
     Dosage: 150 MG BOTH
     Route: 065
     Dates: start: 198501, end: 201601
  13. ZANTAC [Suspect]
     Active Substance: RANITIDINE HYDROCHLORIDE
     Indication: Gastrooesophageal reflux disease
     Dosage: 300 MG, QD
     Route: 065
     Dates: start: 198501, end: 201601
  14. ZANTAC [Suspect]
     Active Substance: RANITIDINE HYDROCHLORIDE
     Dosage: UNK
  15. ZANTAC [Suspect]
     Active Substance: RANITIDINE HYDROCHLORIDE
     Dosage: UNK
  16. RANITIDINE [Suspect]
     Active Substance: RANITIDINE
     Indication: Dyspepsia
     Dosage: 75 MG BOTH
     Route: 065
     Dates: start: 198501, end: 201601
  17. RANITIDINE [Suspect]
     Active Substance: RANITIDINE
     Indication: Abdominal discomfort
     Dosage: 150 MG BOTH
     Route: 065
     Dates: start: 198501, end: 201601
  18. RANITIDINE [Suspect]
     Active Substance: RANITIDINE
     Indication: Gastrooesophageal reflux disease
     Dosage: 300 MG, QD
     Route: 065
     Dates: start: 198501, end: 201601
  19. RANITIDINE [Suspect]
     Active Substance: RANITIDINE
     Dosage: UNK
  20. RANITIDINE [Suspect]
     Active Substance: RANITIDINE
     Dosage: UNK
  21. RANITIDINE [Suspect]
     Active Substance: RANITIDINE
     Indication: Dyspepsia
     Dosage: 75 MG BOTH
     Route: 065
     Dates: start: 199701, end: 201601
  22. RANITIDINE [Suspect]
     Active Substance: RANITIDINE
     Indication: Abdominal discomfort
     Dosage: 150 MG BOTH
     Route: 065
     Dates: start: 199701, end: 201601
  23. RANITIDINE [Suspect]
     Active Substance: RANITIDINE
     Indication: Gastrooesophageal reflux disease
     Dosage: 300 MG, QD
     Route: 065
     Dates: start: 199701, end: 201601
  24. RANITIDINE [Suspect]
     Active Substance: RANITIDINE
     Dosage: UNK
  25. RANITIDINE [Suspect]
     Active Substance: RANITIDINE
     Dosage: UNK

REACTIONS (1)
  - Breast cancer [Unknown]
